FAERS Safety Report 6821338-4 (Version None)
Quarter: 2010Q3

REPORT INFORMATION
  Report Type: 
  Country: None (occurrence: None)
  Receive Date: 20100707
  Receipt Date: 20080709
  Transmission Date: 20110219
  Serious: No
  Sender: FDA-Public Use
  Company Number: US-PFIZER INC-2008058046

PATIENT
  Sex: Male
  Weight: 69.09 kg

DRUGS (1)
  1. ZOLOFT [Suspect]
     Indication: OBSESSIVE-COMPULSIVE DISORDER
     Dates: start: 19930101, end: 20080705

REACTIONS (6)
  - AGITATION [None]
  - DIZZINESS [None]
  - DRUG DOSE OMISSION [None]
  - EMOTIONAL DISORDER [None]
  - FRUSTRATION [None]
  - MOOD SWINGS [None]
